FAERS Safety Report 7487430 (Version 3)
Quarter: 2020Q3

REPORT INFORMATION
  Report Type: Report from Study
  Country: CN (occurrence: CN)
  Receive Date: 20100719
  Receipt Date: 20100728
  Transmission Date: 20201104
  Serious: Yes (Death, Hospitalization)
  Sender: FDA-Public Use
  Company Number: CN-WYE-H15962010

PATIENT
  Age: 53 Year
  Sex: Female
  Weight: 57 kg

DRUGS (2)
  1. NERATINIB [Suspect]
     Active Substance: NERATINIB
     Indication: BREAST CANCER
     Route: 048
     Dates: start: 20100623, end: 20100630
  2. CAPECITABINE. [Suspect]
     Active Substance: CAPECITABINE
     Indication: BREAST CANCER
     Route: 048
     Dates: start: 20100623, end: 20100630

REACTIONS (5)
  - Thrombocytopenia [Fatal]
  - Breast cancer metastatic [None]
  - Neoplasm malignant [None]
  - Death [Fatal]
  - Metastases to liver [None]

NARRATIVE: CASE EVENT DATE: 20100630
